FAERS Safety Report 8307374-X (Version None)
Quarter: 2012Q2

REPORT INFORMATION
  Report Type: 
  Country: None (occurrence: None)
  Receive Date: 20120424
  Receipt Date: 20120413
  Transmission Date: 20120825
  Serious: Yes (Other)
  Sender: FDA-Public Use
  Company Number: JP-FRI-1000029975

PATIENT
  Age: 67 Year
  Sex: Female

DRUGS (8)
  1. ROHYPNOL [Concomitant]
     Dosage: 2 MG
     Route: 048
  2. CHLORPROMAZINE HCL [Concomitant]
     Route: 048
  3. PHENOBARBITAL TAB [Concomitant]
     Route: 048
  4. BROMOVALERYLUREA [Concomitant]
     Dosage: 0.3 G
     Route: 048
  5. ALPRAZOLAM [Concomitant]
     Dosage: 1.2 MG
     Route: 048
  6. LEXAPRO [Suspect]
     Dosage: 10 MG
     Route: 048
     Dates: start: 20120119
  7. HANGE-KOBOKU-TO [Concomitant]
     Route: 048
  8. DOGMATYL [Concomitant]
     Dosage: 150 MG
     Route: 048

REACTIONS (1)
  - LIVER DISORDER [None]
